FAERS Safety Report 18490755 (Version 1)
Quarter: 2020Q4

REPORT INFORMATION
  Report Type: Spontaneous
  Country: US (occurrence: US)
  Receive Date: 20201111
  Receipt Date: 20201111
  Transmission Date: 20210114
  Serious: No
  Sender: FDA-Public Use
  Company Number: US-SA-2020SA311964

PATIENT

DRUGS (1)
  1. TOUJEO MAX [Suspect]
     Active Substance: INSULIN GLARGINE
     Dosage: UNKNOWN
     Route: 065

REACTIONS (2)
  - Product storage error [Unknown]
  - Product dispensing error [Unknown]
